FAERS Safety Report 15539055 (Version 1)
Quarter: 2018Q4

REPORT INFORMATION
  Report Type: Spontaneous
  Country: RU (occurrence: RU)
  Receive Date: 20181022
  Receipt Date: 20181022
  Transmission Date: 20190205
  Serious: Yes (Death)
  Sender: FDA-Public Use
  Company Number: PHHY2018RU133848

PATIENT
  Age: 61 Year
  Sex: Male

DRUGS (3)
  1. PROPOFOL-LIPURO [Suspect]
     Active Substance: PROPOFOL
     Indication: SEDATION
     Dosage: 500 MG, QD
     Route: 042
     Dates: start: 20171025
  2. ATROPIN [Suspect]
     Active Substance: ATROPINE
     Indication: PREMEDICATION
     Dosage: 1 MG, QD
     Route: 042
     Dates: start: 20171025, end: 20171025
  3. AMOKSIKLAV [Suspect]
     Active Substance: AMOXICILLIN\CLAVULANATE POTASSIUM
     Indication: ANTIBIOTIC PROPHYLAXIS
     Dosage: 1200 MG, QD
     Route: 042
     Dates: start: 20171025, end: 20171025

REACTIONS (2)
  - Cardiac arrest [Fatal]
  - Respiratory arrest [Fatal]

NARRATIVE: CASE EVENT DATE: 20171025
